FAERS Safety Report 4600272-4 (Version None)
Quarter: 2005Q1

REPORT INFORMATION
  Report Type: 
  Country: None (occurrence: None)
  Receive Date: 20050307
  Receipt Date: 20050303
  Transmission Date: 20050727
  Serious: Yes (Hospitalization)
  Sender: FDA-Public Use
  Company Number: FR-GLAXOSMITHKLINE-B0373615A

PATIENT
  Age: 76 Year
  Sex: Male

DRUGS (1)
  1. MALARONE [Suspect]
     Indication: MALARIA PROPHYLAXIS
     Dosage: 1TAB PER DAY
     Route: 048
     Dates: start: 20050221, end: 20050228

REACTIONS (6)
  - ANOREXIA [None]
  - DEHYDRATION [None]
  - FATIGUE [None]
  - MALAISE [None]
  - MYALGIA [None]
  - RENAL FAILURE ACUTE [None]
